FAERS Safety Report 23695328 (Version 1)
Quarter: 2024Q2

REPORT INFORMATION
  Report Type: Spontaneous
  Country: US (occurrence: US)
  Receive Date: 20240402
  Receipt Date: 20240402
  Transmission Date: 20240716
  Serious: No
  Sender: FDA-Public Use
  Company Number: US-ABBVIE-5700852

PATIENT
  Sex: Male

DRUGS (2)
  1. RISANKIZUMAB [Suspect]
     Active Substance: RISANKIZUMAB
     Indication: Crohn^s disease
     Dosage: TIME INTERVAL: TOTAL
     Route: 042
     Dates: start: 20240123, end: 20240123
  2. RISANKIZUMAB [Suspect]
     Active Substance: RISANKIZUMAB
     Indication: Crohn^s disease
     Dosage: TIME INTERVAL: TOTAL
     Route: 042
     Dates: start: 2024, end: 2024

REACTIONS (4)
  - Malaise [Unknown]
  - Pain [Unknown]
  - Pain [Unknown]
  - Pain [Unknown]

NARRATIVE: CASE EVENT DATE: 20240101
